FAERS Safety Report 18755690 (Version 1)
Quarter: 2021Q1

REPORT INFORMATION
  Report Type: Report from Study
  Country: None (occurrence: CA)
  Receive Date: 20210119
  Receipt Date: 20210119
  Transmission Date: 20210419
  Serious: Yes (Other)
  Sender: FDA-Public Use
  Company Number: CA-ABBVIE-20K-028-3662728-00

PATIENT
  Age: 73 Year
  Sex: Female

DRUGS (2)
  1. PLAQUENIL [Concomitant]
     Active Substance: HYDROXYCHLOROQUINE SULFATE
     Indication: PRODUCT USED FOR UNKNOWN INDICATION
  2. RINVOQ [Suspect]
     Active Substance: UPADACITINIB
     Indication: RHEUMATOID ARTHRITIS
     Route: 048
     Dates: start: 20201114, end: 20201116

REACTIONS (10)
  - Suspected COVID-19 [Unknown]
  - Arthropathy [Unknown]
  - Myocardial infarction [Unknown]
  - Dizziness [Unknown]
  - Pyrexia [Unknown]
  - Dyspnoea [Unknown]
  - Panic attack [Unknown]
  - Palpitations [Unknown]
  - Left ventricular hypertrophy [Unknown]
  - Nausea [Unknown]

NARRATIVE: CASE EVENT DATE: 202011
